FAERS Safety Report 6705835-8 (Version None)
Quarter: 2010Q2

REPORT INFORMATION
  Report Type: 
  Country: None (occurrence: None)
  Receive Date: 20100503
  Receipt Date: 20100503
  Transmission Date: 20101027
  Serious: Yes (Hospitalization)
  Sender: FDA-Public Use
  Company Number: US-ELI_LILLY_AND_COMPANY-US201001002007

PATIENT
  Sex: Female

DRUGS (5)
  1. FORTEO [Suspect]
     Indication: OSTEOPOROSIS
     Dates: start: 20040101, end: 20050101
  2. FORTEO [Suspect]
     Dosage: 20 UG, DAILY (1/D)
     Dates: start: 20081101
  3. DETROL /01350201/ [Concomitant]
  4. FAMOTIDINE [Concomitant]
  5. FLAXSEED OIL [Concomitant]

REACTIONS (4)
  - BLADDER OPERATION [None]
  - HIP FRACTURE [None]
  - INTENTIONAL DRUG MISUSE [None]
  - MEDICATION ERROR [None]
